FAERS Safety Report 15087623 (Version 1)
Quarter: 2018Q2

REPORT INFORMATION
  Report Type: Spontaneous
  Country: AT (occurrence: AT)
  Receive Date: 20180629
  Receipt Date: 20180629
  Transmission Date: 20180711
  Serious: Yes (Hospitalization, Other)
  Sender: FDA-Public Use
  Company Number: AT-ABBVIE-18K-009-2399112-00

PATIENT
  Age: 39 Year
  Sex: Male
  Weight: 76 kg

DRUGS (1)
  1. HUMIRA [Suspect]
     Active Substance: ADALIMUMAB
     Indication: COLITIS ULCERATIVE
     Route: 058
     Dates: start: 2016

REACTIONS (7)
  - Multiple sclerosis [Not Recovered/Not Resolved]
  - Hemianaesthesia [Not Recovered/Not Resolved]
  - CSF oligoclonal band present [Not Recovered/Not Resolved]
  - Cervix inflammation [Not Recovered/Not Resolved]
  - Autoimmune encephalopathy [Not Recovered/Not Resolved]
  - Encephalitis brain stem [Not Recovered/Not Resolved]
  - Breast inflammation [Not Recovered/Not Resolved]

NARRATIVE: CASE EVENT DATE: 201801
